FAERS Safety Report 11891872 (Version 3)
Quarter: 2016Q3

REPORT INFORMATION
  Report Type: Spontaneous
  Country: US (occurrence: US)
  Receive Date: 20160106
  Receipt Date: 20160819
  Transmission Date: 20161109
  Serious: No
  Sender: FDA-Public Use
  Company Number: US-ACTELION PHARMACEUTICALS US, INC.-A-US2015-129373

PATIENT
  Age: 47 Year
  Sex: Female

DRUGS (2)
  1. ADCIRCA [Concomitant]
     Active Substance: TADALAFIL
     Dosage: UNK
     Dates: end: 20151219
  2. OPSUMIT [Suspect]
     Active Substance: MACITENTAN
     Indication: PULMONARY HYPERTENSION
     Dosage: 10 MG, QD
     Route: 048
     Dates: start: 20141008

REACTIONS (9)
  - Dyspnoea [Unknown]
  - Palpitations [Unknown]
  - Hypoaesthesia [Unknown]
  - Pain [Unknown]
  - Pain in jaw [Unknown]
  - Chest discomfort [Unknown]
  - Cardiac ablation [Unknown]
  - Dyspnoea exertional [Unknown]
  - Paraesthesia [Unknown]

NARRATIVE: CASE EVENT DATE: 20151223
